FAERS Safety Report 16864394 (Version 1)
Quarter: 2019Q3

REPORT INFORMATION
  Report Type: Report from Study
  Country: None (occurrence: IT)
  Receive Date: 20190928
  Receipt Date: 20190928
  Transmission Date: 20191005
  Serious: Yes (Hospitalization)
  Sender: FDA-Public Use
  Company Number: IT-ABBVIE-19K-083-2940075-00

PATIENT
  Age: 68 Year
  Sex: Female

DRUGS (1)
  1. DUODOPA [Suspect]
     Active Substance: CARBIDOPA\LEVODOPA
     Indication: PARKINSON^S DISEASE
     Dosage: MD: 8+3??CR: 2,5??ED: 2
     Route: 050
     Dates: start: 20190605, end: 20190925

REACTIONS (2)
  - Dysphagia [Unknown]
  - Gastric ulcer [Not Recovered/Not Resolved]

NARRATIVE: CASE EVENT DATE: 201909
